FAERS Safety Report 18979241 (Version 1)
Quarter: 2021Q1

REPORT INFORMATION
  Report Type: Report from Study
  Country: CN (occurrence: CN)
  Receive Date: 20210308
  Receipt Date: 20210308
  Transmission Date: 20210420
  Serious: Yes (Other)
  Sender: FDA-Public Use
  Company Number: CN-QILU PHARMACEUTICAL CO.LTD.-QLU-000039-2021

PATIENT
  Age: 24 Month
  Sex: Female

DRUGS (2)
  1. CEFTRIAXONE. [Suspect]
     Active Substance: CEFTRIAXONE
     Indication: PNEUMONIA
     Dosage: UNK
     Route: 065
  2. CEFTRIAXONE. [Suspect]
     Active Substance: CEFTRIAXONE
     Indication: DERMATOMYOSITIS

REACTIONS (3)
  - Hydronephrosis [Recovered/Resolved]
  - Product use in unapproved indication [Unknown]
  - Calculus urinary [Recovered/Resolved]
